FAERS Safety Report 6841038-4 (Version None)
Quarter: 2010Q3

REPORT INFORMATION
  Report Type: 
  Country: None (occurrence: None)
  Receive Date: 20100714
  Receipt Date: 20070625
  Transmission Date: 20110219
  Serious: Yes (Other)
  Sender: FDA-Public Use
  Company Number: US-PFIZER INC-2007053348

PATIENT
  Sex: Female
  Weight: 71.7 kg

DRUGS (5)
  1. CHANTIX [Suspect]
     Indication: SMOKING CESSATION THERAPY
     Route: 048
     Dates: start: 20060901
  2. VALIUM [Concomitant]
  3. ZOCOR [Concomitant]
  4. ZOLOFT [Concomitant]
     Dates: start: 20060101
  5. CLARINEX [Concomitant]

REACTIONS (4)
  - FLATULENCE [None]
  - FLUID RETENTION [None]
  - POLYDIPSIA [None]
  - WEIGHT INCREASED [None]
